FAERS Safety Report 4507430-8 (Version None)
Quarter: 2004Q4

REPORT INFORMATION
  Report Type: 
  Country: None (occurrence: None)
  Receive Date: 20041118
  Receipt Date: 20041110
  Transmission Date: 20050328
  Serious: Yes (Death, Other)
  Sender: FDA-Public Use
  Company Number: HQWYE580429JUL04

PATIENT
  Age: 54 Year

DRUGS (1)
  1. PREMPRO [Suspect]

REACTIONS (1)
  - OVARIAN CANCER [None]
